FAERS Safety Report 7334863-7 (Version None)
Quarter: 2011Q1

REPORT INFORMATION
  Report Type: 
  Country: None (occurrence: None)
  Receive Date: 20110301
  Receipt Date: 20110301
  Transmission Date: 20110831
  Serious: Yes (Death)
  Sender: FDA-Public Use
  Company Number: None

PATIENT
  Sex: Female
  Weight: 78 kg

DRUGS (2)
  1. FLUOROURACIL [Suspect]
     Indication: SQUAMOUS CELL CARCINOMA
     Dosage: 1800 MG DAILY X 4 DAYS IV BOLUS
     Route: 040
     Dates: start: 20101227, end: 20101230
  2. FLUOROURACIL [Suspect]
     Indication: MALIGNANT ANORECTAL NEOPLASM
     Dosage: 1800 MG DAILY X 4 DAYS IV BOLUS
     Route: 040
     Dates: start: 20101227, end: 20101230

REACTIONS (13)
  - RASH [None]
  - DIHYDROPYRIMIDINE DEHYDROGENASE DEFICIENCY [None]
  - THROMBOCYTOPENIA [None]
  - MUCOSAL INFLAMMATION [None]
  - TOXICITY TO VARIOUS AGENTS [None]
  - OROPHARYNGEAL PAIN [None]
  - DYSPHAGIA [None]
  - NEUTROPENIA [None]
  - BRAIN INJURY [None]
  - CARDIO-RESPIRATORY ARREST [None]
  - GLOSSODYNIA [None]
  - STOMATITIS [None]
  - ANAEMIA [None]
